FAERS Safety Report 24850102 (Version 1)
Quarter: 2025Q1

REPORT INFORMATION
  Report Type: Report from Study
  Country: US (occurrence: US)
  Receive Date: 20250116
  Receipt Date: 20250116
  Transmission Date: 20250409
  Serious: Yes (Hospitalization)
  Sender: ALEXION PHARMACEUTICALS
  Company Number: US-AstraZeneca-CH-00781818A

PATIENT

DRUGS (20)
  1. BENRALIZUMAB [Suspect]
     Active Substance: BENRALIZUMAB
     Indication: Asthma
     Dosage: 30 MILLIGRAM, Q4W
  2. BENRALIZUMAB [Suspect]
     Active Substance: BENRALIZUMAB
     Dosage: 30 MILLIGRAM, Q4W
     Route: 058
  3. BENRALIZUMAB [Suspect]
     Active Substance: BENRALIZUMAB
     Dosage: 30 MILLIGRAM, Q4W
  4. BENRALIZUMAB [Suspect]
     Active Substance: BENRALIZUMAB
     Dosage: 30 MILLIGRAM, Q4W
     Route: 058
  5. LISINOPRIL [Concomitant]
     Active Substance: LISINOPRIL
     Route: 065
  6. LISINOPRIL [Concomitant]
     Active Substance: LISINOPRIL
     Route: 065
  7. DILTIAZEM [Concomitant]
     Active Substance: DILTIAZEM
     Route: 065
  8. DILTIAZEM [Concomitant]
     Active Substance: DILTIAZEM
     Route: 065
  9. YUPELRI [Concomitant]
     Active Substance: REVEFENACIN
     Route: 065
  10. YUPELRI [Concomitant]
     Active Substance: REVEFENACIN
     Route: 065
  11. ARFORMOTEROL TARTRATE [Concomitant]
     Active Substance: ARFORMOTEROL TARTRATE
     Route: 065
  12. ARFORMOTEROL TARTRATE [Concomitant]
     Active Substance: ARFORMOTEROL TARTRATE
     Route: 065
  13. LEVALBUTEROL [Concomitant]
     Active Substance: LEVALBUTEROL
     Route: 065
  14. LEVALBUTEROL [Concomitant]
     Active Substance: LEVALBUTEROL
     Route: 065
  15. POTASSIUM [Concomitant]
     Active Substance: POTASSIUM
     Route: 065
  16. POTASSIUM [Concomitant]
     Active Substance: POTASSIUM
     Route: 065
  17. VITAMIN D3 [Concomitant]
     Active Substance: CHOLECALCIFEROL
     Route: 065
  18. VITAMIN D3 [Concomitant]
     Active Substance: CHOLECALCIFEROL
     Route: 065
  19. FUROSEMIDE [Concomitant]
     Active Substance: FUROSEMIDE
     Route: 065
  20. FUROSEMIDE [Concomitant]
     Active Substance: FUROSEMIDE
     Route: 065

REACTIONS (1)
  - Liver disorder [Unknown]
